FAERS Safety Report 11824208 (Version 1)
Quarter: 2015Q4

REPORT INFORMATION
  Report Type: Spontaneous
  Country: ES (occurrence: ES)
  Receive Date: 20151210
  Receipt Date: 20151210
  Transmission Date: 20160305
  Serious: Yes (Other)
  Sender: FDA-Public Use
  Company Number: ES-TEVA-615388ISR

PATIENT
  Age: 62 Year
  Sex: Female

DRUGS (1)
  1. ENALAPRIL RATIOPHARM [Suspect]
     Active Substance: ENALAPRIL
     Route: 048

REACTIONS (1)
  - Acute generalised exanthematous pustulosis [Recovered/Resolved]

NARRATIVE: CASE EVENT DATE: 20151030
